FAERS Safety Report 21392940 (Version 1)
Quarter: 2022Q3

REPORT INFORMATION
  Report Type: Spontaneous
  Country: US (occurrence: US)
  Receive Date: 20220929
  Receipt Date: 20220929
  Transmission Date: 20221027
  Serious: Yes (Hospitalization)
  Sender: FDA-Public Use
  Company Number: US-Accord-279479

PATIENT
  Age: 71 Year
  Sex: Male

DRUGS (11)
  1. DEXMEDETOMIDINE HYDROCHLORIDE [Suspect]
     Active Substance: DEXMEDETOMIDINE HYDROCHLORIDE
     Indication: Sedation
  2. MEPIVACAINE [Concomitant]
     Active Substance: MEPIVACAINE HYDROCHLORIDE
     Indication: Sedation
     Dosage: 20 MILLIGRAM (MG) PERINEURAL INFUSION OF MEPIVACAINE 1.5%/ML DURING PREOPERATIVE CARE
  3. PROPOFOL [Concomitant]
     Active Substance: PROPOFOL
     Indication: Sedation
  4. KETAMINE [Concomitant]
     Active Substance: KETAMINE
     Indication: Anaesthesia
  5. METOPROLOL [Concomitant]
     Active Substance: METOPROLOL
     Indication: Hypertension
  6. ATORVASTATIN [Concomitant]
     Active Substance: ATORVASTATIN
     Indication: Product used for unknown indication
  7. BUDESONIDE\FORMOTEROL FUMARATE [Concomitant]
     Active Substance: BUDESONIDE\FORMOTEROL FUMARATE
     Indication: Asthma
  8. IPRATROPIUM [Concomitant]
     Active Substance: IPRATROPIUM
     Indication: Asthma
  9. VENLAFAXINE [Concomitant]
     Active Substance: VENLAFAXINE HYDROCHLORIDE
     Indication: Depression
  10. ALBUTEROL [Concomitant]
     Active Substance: ALBUTEROL
     Indication: Asthma
  11. CLONIDINE [Concomitant]
     Active Substance: CLONIDINE
     Indication: Hypertension

REACTIONS (2)
  - Condition aggravated [Not Recovered/Not Resolved]
  - Restless legs syndrome [Not Recovered/Not Resolved]
